FAERS Safety Report 8910721 (Version 2)
Quarter: 2013Q1

REPORT INFORMATION
  Report Type: Spontaneous
  Country: GR (occurrence: None)
  Receive Date: 20121107
  Receipt Date: 20130123
  Transmission Date: 20140127
  Serious: Yes (Hospitalization)
  Sender: FDA-Public Use
  Company Number: THQ2012A09719

PATIENT
  Age: 55 Year
  Sex: Female

DRUGS (2)
  1. LANSOPRAZOLE [Suspect]
     Indication: GASTROOESOPHAGEAL REFLUX DISEASE
     Route: 048
  2. HOMEOPATHIC MEDICINES (HOMEOPATHIC PREPARATION) [Concomitant]

REACTIONS (3)
  - Coma [None]
  - Anaphylactic shock [None]
  - Pruritus [None]
